FAERS Safety Report 7568119-4 (Version None)
Quarter: 2011Q2

REPORT INFORMATION
  Report Type: 
  Country: None (occurrence: None)
  Receive Date: 20110616
  Receipt Date: 20110531
  Transmission Date: 20111010
  Serious: Yes (Other)
  Sender: FDA-Public Use
  Company Number: DSA_46872_2011

PATIENT
  Age: 74 Year
  Sex: Female

DRUGS (8)
  1. OLMESARTAN MEDOXOMIL [Suspect]
     Indication: PRODUCT USED FOR UNKNOWN INDICATION
     Dosage: (DF ORAL)
     Route: 048
  2. DILTIAZEM HCL [Suspect]
     Indication: HYPERTENSION
     Dosage: (DF ORAL)
     Route: 048
  3. ZOLPIDEM TARTRATE [Suspect]
     Indication: PRODUCT USED FOR UNKNOWN INDICATION
     Dosage: (DF ORAL)
     Route: 048
  4. ETHENZAMIDE [Concomitant]
  5. CEFDINIR [Suspect]
     Indication: ANALGESIC INTERVENTION SUPPORTIVE THERAPY
     Dosage: (300 MG, DAILY)
  6. IBUPROFEN [Concomitant]
  7. EPINASTINE HYDROCHLORIDE [Suspect]
     Indication: PRODUCT USED FOR UNKNOWN INDICATION
     Dosage: (DF ORAL)
     Route: 048
  8. MOSAPRIDE CITRATE (MOSAPRIDE CITRATE) [Suspect]
     Indication: PRODUCT USED FOR UNKNOWN INDICATION
     Dosage: (DF ORAL)
     Route: 048

REACTIONS (12)
  - PAIN [None]
  - BLOOD LACTATE DEHYDROGENASE INCREASED [None]
  - LIVER DISORDER [None]
  - ALANINE AMINOTRANSFERASE INCREASED [None]
  - MALAISE [None]
  - ASPARTATE AMINOTRANSFERASE INCREASED [None]
  - GAMMA-GLUTAMYLTRANSFERASE INCREASED [None]
  - HEPATIC FUNCTION ABNORMAL [None]
  - PERIODONTITIS [None]
  - PYREXIA [None]
  - GINGIVAL BLEEDING [None]
  - JAUNDICE [None]
